FAERS Safety Report 15227630 (Version 5)
Quarter: 2019Q1

REPORT INFORMATION
  Report Type: Spontaneous
  Country: US (occurrence: US)
  Receive Date: 20180801
  Receipt Date: 20190219
  Transmission Date: 20190417
  Serious: Yes (Hospitalization, Other)
  Sender: FDA-Public Use
  Company Number: US-OTSUKA-2018_016887

PATIENT
  Sex: Male

DRUGS (6)
  1. ABILIFY [Suspect]
     Active Substance: ARIPIPRAZOLE
     Indication: INSOMNIA
  2. ARIPIPRAZOLE. [Concomitant]
     Active Substance: ARIPIPRAZOLE
     Indication: PRODUCT USED FOR UNKNOWN INDICATION
     Dosage: UNK
     Route: 065
     Dates: start: 200706, end: 20180603
  3. ABILIFY [Suspect]
     Active Substance: ARIPIPRAZOLE
     Indication: MAJOR DEPRESSION
     Dosage: 2 MG, QD
     Route: 065
  4. ABILIFY [Suspect]
     Active Substance: ARIPIPRAZOLE
     Indication: ANXIETY
  5. ABILIFY [Suspect]
     Active Substance: ARIPIPRAZOLE
     Indication: AGITATION
     Dosage: 5 MG, QD
     Route: 065
     Dates: end: 20180625
  6. ABILIFY [Suspect]
     Active Substance: ARIPIPRAZOLE
     Indication: IRRITABILITY

REACTIONS (24)
  - Total cholesterol/HDL ratio decreased [Unknown]
  - White blood cell count increased [Unknown]
  - Compulsive sexual behaviour [Not Recovered/Not Resolved]
  - Suicide attempt [Not Recovered/Not Resolved]
  - Divorced [Unknown]
  - Shoplifting [Not Recovered/Not Resolved]
  - Lymphocyte count increased [Unknown]
  - Anxiety [Unknown]
  - Economic problem [Unknown]
  - Condition aggravated [Recovered/Resolved]
  - Product use in unapproved indication [Unknown]
  - Mean cell haemoglobin concentration increased [Unknown]
  - Anhedonia [Unknown]
  - Glycosylated haemoglobin increased [Unknown]
  - Mental disorder [Unknown]
  - Theft [Not Recovered/Not Resolved]
  - Sexual dysfunction [Not Recovered/Not Resolved]
  - Compulsive shopping [Unknown]
  - Loss of employment [Unknown]
  - Suicidal ideation [Not Recovered/Not Resolved]
  - Psychomotor retardation [Unknown]
  - Low density lipoprotein increased [Unknown]
  - Gambling disorder [Recovered/Resolved]
  - Personal relationship issue [Unknown]

NARRATIVE: CASE EVENT DATE: 200904
